FAERS Safety Report 9725694 (Version 1)
Quarter: 2013Q4

REPORT INFORMATION
  Report Type: Spontaneous
  Country: US (occurrence: None)
  Receive Date: 20131127
  Receipt Date: 20131127
  Transmission Date: 20140711
  Serious: Yes (Hospitalization)
  Sender: FDA-Public Use
  Company Number: IPC201311-000478

PATIENT
  Age: 69 Year
  Sex: Female

DRUGS (4)
  1. ATENOLOL [Suspect]
  2. AMLODIPINE BESILATE [Suspect]
  3. THIORIDAZINE [Suspect]
  4. INSULIN [Suspect]
     Dosage: HIGH DOSE

REACTIONS (6)
  - Lethargy [None]
  - Shock [None]
  - Sinus bradycardia [None]
  - Hypokalaemia [None]
  - Tachycardia [None]
  - Overdose [None]
